FAERS Safety Report 19010026 (Version 1)
Quarter: 2021Q1

REPORT INFORMATION
  Report Type: Spontaneous
  Country: AU (occurrence: AU)
  Receive Date: 20210316
  Receipt Date: 20210316
  Transmission Date: 20210420
  Serious: Yes (Death, Other)
  Sender: FDA-Public Use
  Company Number: AU-AMGEN-AUSSP2021037503

PATIENT

DRUGS (4)
  1. THALIDOMIDE [Suspect]
     Active Substance: THALIDOMIDE
     Indication: PLASMA CELL MYELOMA
     Dosage: 100 MILLIGRAM, QD (EVERY NIGHT)
     Route: 048
  2. CARFILZOMIB [Suspect]
     Active Substance: CARFILZOMIB
     Indication: PLASMA CELL MYELOMA
     Dosage: 20 MILLIGRAM/SQ. METER, CYCLE 1, DAY 1 AND 2
     Route: 042
  3. CARFILZOMIB [Suspect]
     Active Substance: CARFILZOMIB
     Dosage: 56MG/M2 (36MG/M2 FOR PATIENTS AGE EQUALS TO OR MORE THAN 75 YEARS FROM CYCLE 1, DAY 8 ONWARDS
     Route: 042
  4. DEXAMETHASONE. [Suspect]
     Active Substance: DEXAMETHASONE
     Indication: PLASMA CELL MYELOMA
     Dosage: 40MG (20MG FOR PATIENTS AGE EQUAL TO OR MORE THAN 75 YEARS) WEEKLY
     Route: 048

REACTIONS (11)
  - Hypertension [Unknown]
  - Plasma cell myeloma [Fatal]
  - Infection [Fatal]
  - Neuropathy peripheral [Unknown]
  - Cardiac disorder [Unknown]
  - Adverse event [Unknown]
  - Dyspnoea [Unknown]
  - Upper respiratory tract infection [Unknown]
  - Myocardial ischaemia [Fatal]
  - Road traffic accident [Fatal]
  - Off label use [Unknown]
